FAERS Safety Report 7754380-X (Version None)
Quarter: 2011Q3

REPORT INFORMATION
  Report Type: 
  Country: None (occurrence: None)
  Receive Date: 20110915
  Receipt Date: 20110829
  Transmission Date: 20111222
  Serious: Yes (Other)
  Sender: FDA-Public Use
  Company Number: US-ASTRAZENECA-2011SE54476

PATIENT
  Sex: Female

DRUGS (10)
  1. CENTRUM [Concomitant]
  2. ASPIRIN [Concomitant]
  3. SPIRIVA [Concomitant]
  4. GLUCOSAMINE [Concomitant]
  5. PRILOSEC OTC [Suspect]
     Route: 048
     Dates: start: 20110727, end: 20110828
  6. POTASSIUM [Concomitant]
  7. ASPIRIN [Concomitant]
  8. PROAIR HFA [Concomitant]
  9. ADVAIR DISKUS 100/50 [Concomitant]
  10. CALCIUM CARBONATE [Concomitant]

REACTIONS (4)
  - OCULAR ICTERUS [None]
  - VISUAL IMPAIRMENT [None]
  - NAUSEA [None]
  - JAUNDICE [None]
